FAERS Safety Report 4659728-0 (Version None)
Quarter: 2005Q2

REPORT INFORMATION
  Report Type: 
  Country: None (occurrence: None)
  Receive Date: 20050420
  Receipt Date: 20050316
  Transmission Date: 20051028
  Serious: No
  Sender: FDA-Public Use
  Company Number: PHEH2005US03242

PATIENT
  Age: 59 Year
  Sex: Female

DRUGS (2)
  1. ENABLEX [Suspect]
     Indication: BLADDER DISORDER
     Dosage: 7.5 MG, QD, ORAL
     Route: 048
     Dates: start: 20050314
  2. RELPAX(ELETRIPTAN HYDROBROMIDE) [Concomitant]

REACTIONS (2)
  - ABDOMINAL PAIN [None]
  - DIARRHOEA [None]
